FAERS Safety Report 4611149-2 (Version None)
Quarter: 2005Q1

REPORT INFORMATION
  Report Type: 
  Country: None (occurrence: None)
  Receive Date: 20050315
  Receipt Date: 20050315
  Transmission Date: 20050727
  Serious: Yes (Life-Threatening, Hospitalization)
  Sender: FDA-Public Use
  Company Number: None

PATIENT
  Sex: Female
  Weight: 9 kg

DRUGS (2)
  1. CORD BLOOD [Suspect]
  2. PALL BAG [Concomitant]

REACTIONS (2)
  - DEVICE FAILURE [None]
  - STEM CELL TRANSPLANT [None]
